FAERS Safety Report 21383849 (Version 1)
Quarter: 2022Q3

REPORT INFORMATION
  Report Type: Spontaneous
  Country: NL (occurrence: NL)
  Receive Date: 20220928
  Receipt Date: 20220928
  Transmission Date: 20221027
  Serious: Yes (Other)
  Sender: FDA-Public Use
  Company Number: None

PATIENT
  Sex: Male
  Weight: 100 kg

DRUGS (2)
  1. METHYLPHENIDATE [Suspect]
     Active Substance: METHYLPHENIDATE
     Indication: Attention deficit hyperactivity disorder
     Dosage: 54 MILLIGRAM DAILY; 1 X PER DAY 1 PIECE , METHYLFENIDAAT TABLET MGA 54MG / BRAND NAME NOT SPECIFIED
     Dates: start: 20220802
  2. FEXOFENADINE [Concomitant]
     Active Substance: FEXOFENADINE HYDROCHLORIDE
     Indication: Product used for unknown indication
     Dosage: FORM STRENGTH :180 MG (MILLIGRAM) , / BRAND NAME NOT SPECIFIED , THERAPY START DATE AND END DATE :

REACTIONS (4)
  - Tunnel vision [Not Recovered/Not Resolved]
  - Palpitations [Not Recovered/Not Resolved]
  - Product complaint [Not Recovered/Not Resolved]
  - Inappropriate release of product for distribution [Not Recovered/Not Resolved]
